FAERS Safety Report 25248472 (Version 1)
Quarter: 2025Q2

REPORT INFORMATION
  Report Type: Spontaneous
  Country: US (occurrence: US)
  Receive Date: 20250429
  Receipt Date: 20250429
  Transmission Date: 20250717
  Serious: No
  Sender: TARO
  Company Number: US-TARO PHARMACEUTICALS USA INC.-2025TAR00537

PATIENT

DRUGS (2)
  1. FLUOROURACIL [Suspect]
     Active Substance: FLUOROURACIL
     Indication: Precancerous skin lesion
     Dosage: UNK,TO CHEST AND FOREARMS AND A SPOT ON HER LEG
     Route: 061
     Dates: start: 20250120, end: 20250129
  2. clobazebam [Concomitant]
     Indication: Insomnia
     Route: 065

REACTIONS (4)
  - Rash [Not Recovered/Not Resolved]
  - Hypersensitivity [Not Recovered/Not Resolved]
  - Urticaria [Not Recovered/Not Resolved]
  - Swelling [Not Recovered/Not Resolved]
